FAERS Safety Report 7924817-1 (Version None)
Quarter: 2011Q4

REPORT INFORMATION
  Report Type: 
  Country: None (occurrence: None)
  Receive Date: 20111118
  Receipt Date: 20111114
  Transmission Date: 20120403
  Serious: Yes (Hospitalization)
  Sender: FDA-Public Use
  Company Number: IT-BRISTOL-MYERS SQUIBB COMPANY-16193062

PATIENT
  Age: 74 Year
  Sex: Female

DRUGS (4)
  1. COUMADIN [Suspect]
     Indication: ATRIAL FIBRILLATION
     Dosage: 1DF=1 UNIT
     Route: 048
     Dates: start: 20040101, end: 20110530
  2. IRON [Concomitant]
  3. PROCAPTAN [Concomitant]
     Indication: HYPERTENSION
  4. LASIX [Concomitant]
     Dosage: 1DF=2 UNITS

REACTIONS (3)
  - GASTROINTESTINAL HAEMORRHAGE [None]
  - ANAEMIA [None]
  - MELAENA [None]
